FAERS Safety Report 21060191 (Version 1)
Quarter: 2022Q3

REPORT INFORMATION
  Report Type: Spontaneous
  Country: US (occurrence: US)
  Receive Date: 20220708
  Receipt Date: 20220708
  Transmission Date: 20221027
  Serious: No
  Sender: FDA-Public Use
  Company Number: US-SA-SAC20220704001252

PATIENT
  Age: 66 Year
  Sex: Female

DRUGS (1)
  1. DUPIXENT [Suspect]
     Active Substance: DUPILUMAB
     Indication: Asthma
     Dosage: 300 MG EVERY 2 WEEKS
     Route: 058

REACTIONS (5)
  - Dyspepsia [Unknown]
  - Fatigue [Unknown]
  - Dysphagia [Unknown]
  - Malaise [Unknown]
  - Gastritis [Unknown]

NARRATIVE: CASE EVENT DATE: 20220601
